FAERS Safety Report 7349238-4 (Version None)
Quarter: 2011Q1

REPORT INFORMATION
  Report Type: 
  Country: None (occurrence: None)
  Receive Date: 20110314
  Receipt Date: 20110302
  Transmission Date: 20110831
  Serious: Yes (Disabling)
  Sender: FDA-Public Use
  Company Number: GB-PFIZER INC-GB-WYE-G03932909

PATIENT
  Age: 42 Year
  Sex: Female
  Weight: 65 kg

DRUGS (2)
  1. SERTRALINE HYDROCHLORIDE [Suspect]
     Dosage: UNK
     Route: 048
  2. IBUPROFEN [Suspect]
     Dosage: UNK
     Route: 048

REACTIONS (1)
  - OSTEONECROSIS [None]
